FAERS Safety Report 11616245 (Version 2)
Quarter: 2015Q4

REPORT INFORMATION
  Report Type: Spontaneous
  Country: US (occurrence: US)
  Receive Date: 20151009
  Receipt Date: 20151014
  Transmission Date: 20160304
  Serious: No
  Sender: FDA-Public Use
  Company Number: US-BAYER-2015-438947

PATIENT
  Age: 38 Year
  Sex: Female
  Weight: 77.98 kg

DRUGS (1)
  1. ZEGERID OTC CAPSULES [Suspect]
     Active Substance: OMEPRAZOLE\SODIUM BICARBONATE
     Indication: DYSPEPSIA
     Dosage: 1 DF, BID
     Route: 048
     Dates: start: 2008

REACTIONS (2)
  - Product use issue [Unknown]
  - Product physical issue [None]

NARRATIVE: CASE EVENT DATE: 2008
